FAERS Safety Report 25643043 (Version 2)
Quarter: 2025Q3

REPORT INFORMATION
  Report Type: Spontaneous
  Country: US (occurrence: US)
  Receive Date: 20250805
  Receipt Date: 20250922
  Transmission Date: 20251020
  Serious: Yes (Hospitalization, Other)
  Sender: ALEXION PHARMACEUTICALS
  Company Number: US-AstraZeneca-CH-00923204AP

PATIENT
  Age: 71 Year
  Sex: Female

DRUGS (3)
  1. TEZSPIRE [Suspect]
     Active Substance: TEZEPELUMAB-EKKO
     Indication: Asthma
     Dosage: 210 MILLIGRAM, QMONTH
     Route: 065
  2. TEZSPIRE [Suspect]
     Active Substance: TEZEPELUMAB-EKKO
  3. PREDNISONE [Concomitant]
     Active Substance: PREDNISONE
     Route: 065

REACTIONS (6)
  - Chest pain [Recovering/Resolving]
  - Asthma [Recovering/Resolving]
  - Device leakage [Unknown]
  - Drug dose omission by device [Unknown]
  - Heart rate increased [Unknown]
  - Device defective [Unknown]

NARRATIVE: CASE EVENT DATE: 20250723
